FAERS Safety Report 24837488 (Version 1)
Quarter: 2025Q1

REPORT INFORMATION
  Report Type: Spontaneous
  Country: US (occurrence: US)
  Receive Date: 20250113
  Receipt Date: 20250113
  Transmission Date: 20250408
  Serious: Yes (Hospitalization, Other)
  Sender: PFIZER
  Company Number: US-PFIZER INC-202500004055

PATIENT
  Age: 86 Year
  Sex: Male

DRUGS (1)
  1. XELJANZ [Suspect]
     Active Substance: TOFACITINIB CITRATE
     Indication: Rheumatoid arthritis
     Dosage: 5 MG, 2X/DAY

REACTIONS (6)
  - Fall [Unknown]
  - Spinal pain [Unknown]
  - Drug ineffective [Unknown]
  - Osteoarthritis [Not Recovered/Not Resolved]
  - Balance disorder [Unknown]
  - Neuralgia [Unknown]
